FAERS Safety Report 20212929 (Version 1)
Quarter: 2021Q4

REPORT INFORMATION
  Report Type: Spontaneous
  Country: CA (occurrence: CA)
  Receive Date: 20211221
  Receipt Date: 20211221
  Transmission Date: 20220303
  Serious: Yes (Other)
  Sender: FDA-Public Use
  Company Number: CA-TEVA-2021-CA-1989268

PATIENT
  Age: 47 Year
  Sex: Male

DRUGS (26)
  1. CYCLOSPORINE [Interacting]
     Active Substance: CYCLOSPORINE
     Indication: Immunosuppression
     Dosage: 50 MILLIGRAM DAILY;
     Route: 065
  2. CYCLOSPORINE [Interacting]
     Active Substance: CYCLOSPORINE
     Dosage: 20 MILLIGRAM DAILY;
     Route: 065
  3. CYCLOSPORINE [Interacting]
     Active Substance: CYCLOSPORINE
     Dosage: 20 MILLIGRAM DAILY;
     Route: 065
  4. CYCLOSPORINE [Interacting]
     Active Substance: CYCLOSPORINE
     Dosage: 40 MILLIGRAM DAILY;
     Route: 065
  5. CYCLOSPORINE [Interacting]
     Active Substance: CYCLOSPORINE
     Dosage: 50 MILLIGRAM DAILY;
     Route: 065
  6. CYCLOSPORINE [Interacting]
     Active Substance: CYCLOSPORINE
     Dosage: 40 MILLIGRAM DAILY;
     Route: 065
  7. CYCLOSPORINE [Interacting]
     Active Substance: CYCLOSPORINE
     Dosage: 3 MILLIGRAM DAILY;
     Route: 065
  8. COBICISTAT\ELVITEGRAVIR\EMTRICITABINE\TENOFOVIR ALAFENAMIDE FUMARATE [Interacting]
     Active Substance: COBICISTAT\ELVITEGRAVIR\EMTRICITABINE\TENOFOVIR ALAFENAMIDE FUMARATE
     Indication: HIV infection
     Dosage: 1 DOSAGE FORMS DAILY;
     Route: 065
  9. ETRAVIRINE [Interacting]
     Active Substance: ETRAVIRINE
     Indication: HIV infection
     Dosage: 400 MILLIGRAM DAILY;
     Route: 065
  10. LAMIVUDINE [Interacting]
     Active Substance: LAMIVUDINE
     Indication: HIV infection
     Dosage: 400 MILLIGRAM DAILY;
     Route: 065
  11. PREZISTA [Interacting]
     Active Substance: DARUNAVIR ETHANOLATE
     Indication: HIV infection
     Dosage: 800 MILLIGRAM DAILY;
     Route: 048
  12. PREZISTA [Interacting]
     Active Substance: DARUNAVIR ETHANOLATE
     Dosage: 1200 MILLIGRAM DAILY;
     Route: 048
  13. PREZISTA [Interacting]
     Active Substance: DARUNAVIR ETHANOLATE
     Dosage: 1200 MILLIGRAM DAILY;
     Route: 048
  14. PREZISTA [Interacting]
     Active Substance: DARUNAVIR ETHANOLATE
     Dosage: 600 MILLIGRAM DAILY;
     Route: 048
  15. RALTEGRAVIR [Interacting]
     Active Substance: RALTEGRAVIR
     Indication: HIV infection
     Dosage: 800 MILLIGRAM DAILY;
     Route: 065
  16. RITONAVIR [Interacting]
     Active Substance: RITONAVIR
     Indication: HIV infection
     Dosage: 200 MILLIGRAM DAILY;
     Route: 065
  17. RITONAVIR [Interacting]
     Active Substance: RITONAVIR
     Dosage: 200 MILLIGRAM DAILY;
     Route: 065
  18. RITONAVIR [Interacting]
     Active Substance: RITONAVIR
     Dosage: 200 MILLIGRAM DAILY;
     Route: 065
  19. TACROLIMUS [Interacting]
     Active Substance: TACROLIMUS
     Indication: Immunosuppression
     Route: 065
  20. TACROLIMUS [Interacting]
     Active Substance: TACROLIMUS
     Dosage: .07 MILLIGRAM DAILY;
     Route: 065
  21. TACROLIMUS [Interacting]
     Active Substance: TACROLIMUS
     Dosage: .1 MILLIGRAM DAILY;
     Route: 065
  22. TACROLIMUS [Interacting]
     Active Substance: TACROLIMUS
     Dosage: 1 MILLIGRAM DAILY;
     Route: 065
  23. TACROLIMUS [Interacting]
     Active Substance: TACROLIMUS
     Dosage: .2 MILLIGRAM DAILY;
     Route: 065
  24. TACROLIMUS [Interacting]
     Active Substance: TACROLIMUS
     Dosage: .5 MILLIGRAM DAILY;
     Route: 065
  25. TRUVADA [Interacting]
     Active Substance: EMTRICITABINE\TENOFOVIR DISOPROXIL FUMARATE
     Indication: HIV infection
     Dosage: 1 DOSAGE FORMS DAILY;
     Route: 065
  26. ABACAVIR [Interacting]
     Active Substance: ABACAVIR
     Indication: HIV infection
     Dosage: 600 MILLIGRAM DAILY;
     Route: 065

REACTIONS (1)
  - Drug interaction [Unknown]
